FAERS Safety Report 18502630 (Version 1)
Quarter: 2020Q4

REPORT INFORMATION
  Report Type: Spontaneous
  Country: US (occurrence: US)
  Receive Date: 20201113
  Receipt Date: 20201113
  Transmission Date: 20210114
  Serious: Yes (Other)
  Sender: FDA-Public Use
  Company Number: US-SUPERNUS PHARMACEUTICALS, INC.-2020SUP00732

PATIENT
  Age: 29 Year
  Sex: Female

DRUGS (1)
  1. OXTELLAR XR [Suspect]
     Active Substance: OXCARBAZEPINE
     Dosage: 2400 MG, 1X/DAY
     Route: 048

REACTIONS (7)
  - Partial seizures with secondary generalisation [Unknown]
  - Simple partial seizures [Unknown]
  - Gastrointestinal disorder [Unknown]
  - Somnolence [Unknown]
  - Hyponatraemia [Unknown]
  - Movement disorder [Unknown]
  - Balance disorder [Unknown]
